FAERS Safety Report 17285298 (Version 1)
Quarter: 2020Q1

REPORT INFORMATION
  Report Type: Spontaneous
  Country: US (occurrence: US)
  Receive Date: 20200117
  Receipt Date: 20200117
  Transmission Date: 20200409
  Serious: Yes (Hospitalization, Other)
  Sender: FDA-Public Use
  Company Number: US-SA-2020SA013684

PATIENT
  Age: 63 Year
  Sex: Male
  Weight: 104.2 kg

DRUGS (13)
  1. ISOSORBIDE. [Concomitant]
     Active Substance: ISOSORBIDE
     Dosage: 30 MG
  2. ANEXA [Concomitant]
     Dosage: 500 MG
  3. PLAVIX [Suspect]
     Active Substance: CLOPIDOGREL BISULFATE
     Indication: STENT PLACEMENT
     Dosage: UNK
     Dates: start: 2008
  4. LASIX [Concomitant]
     Active Substance: FUROSEMIDE
  5. LOVASTATIN. [Concomitant]
     Active Substance: LOVASTATIN
  6. PROSCAR [Concomitant]
     Active Substance: FINASTERIDE
  7. ACETYLSALICYLIC ACID [Suspect]
     Active Substance: ASPIRIN
  8. LEXAPRO [Concomitant]
     Active Substance: ESCITALOPRAM OXALATE
     Dosage: 20 MG, QD
  9. ATENOLOL. [Concomitant]
     Active Substance: ATENOLOL
  10. ELIQUIS [Suspect]
     Active Substance: APIXABAN
     Indication: PULMONARY EMBOLISM
     Dosage: UNK
  11. NITROGLYCERIN. [Concomitant]
     Active Substance: NITROGLYCERIN
  12. FLOMAX [Concomitant]
     Active Substance: TAMSULOSIN HYDROCHLORIDE
  13. SUBUTEX [Concomitant]
     Active Substance: BUPRENORPHINE HYDROCHLORIDE
     Dosage: 8 MG

REACTIONS (9)
  - Somnolence [Unknown]
  - Pulmonary embolism [Unknown]
  - Abnormal behaviour [Unknown]
  - Cerebrovascular accident [Unknown]
  - Cold sweat [Unknown]
  - Asthenia [Unknown]
  - Coordination abnormal [Unknown]
  - Muscle spasms [Unknown]
  - Dyspnoea [Unknown]
